FAERS Safety Report 5869829-7 (Version None)
Quarter: 2008Q3

REPORT INFORMATION
  Report Type: 
  Country: None (occurrence: None)
  Receive Date: 20080904
  Receipt Date: 20080827
  Transmission Date: 20090109
  Serious: Yes (Hospitalization, Other)
  Sender: FDA-Public Use
  Company Number: US-AMGEN-US281516

PATIENT
  Sex: Female
  Weight: 168.4 kg

DRUGS (7)
  1. ENBREL [Suspect]
     Indication: PSORIASIS
     Route: 058
     Dates: start: 20060701, end: 20080418
  2. INFLUENZA VACCINE [Concomitant]
     Route: 065
     Dates: start: 20071215, end: 20071215
  3. VITAMIN TAB [Concomitant]
     Route: 048
     Dates: start: 20070918
  4. TRIAMCINOLONE [Concomitant]
     Route: 061
     Dates: start: 20070918, end: 20080506
  5. CLARITIN [Concomitant]
     Route: 048
     Dates: start: 20071218, end: 20080220
  6. UNSPECIFIED ANTIEMETIC [Concomitant]
     Route: 065
     Dates: start: 20080101
  7. UNSPECIFIED PAIN MEDICATION [Concomitant]
     Route: 065
     Dates: start: 20080101

REACTIONS (6)
  - KIDNEY INFECTION [None]
  - PANCREATITIS [None]
  - PSORIASIS [None]
  - UTERINE CONTRACTIONS DURING PREGNANCY [None]
  - UTERINE INFECTION [None]
  - WOUND NECROSIS [None]
